FAERS Safety Report 9751668 (Version 1)
Quarter: 2013Q4

REPORT INFORMATION
  Report Type: Report from Study
  Country: CR (occurrence: CR)
  Receive Date: 20131213
  Receipt Date: 20131213
  Transmission Date: 20140711
  Serious: Yes (Death)
  Sender: FDA-Public Use
  Company Number: CR-ROCHE-1319215

PATIENT
  Age: 77 Year
  Sex: Female

DRUGS (4)
  1. BONVIVA [Suspect]
     Indication: OSTEOPOROSIS
     Route: 048
     Dates: start: 20080915, end: 201310
  2. COREG [Suspect]
     Indication: HYPERTENSION
     Route: 065
  3. COAPROVEL [Concomitant]
     Indication: HYPERTENSION
  4. AMITRIPTYLINE [Concomitant]
     Indication: DEPRESSION

REACTIONS (1)
  - Cardio-respiratory arrest [Fatal]
